FAERS Safety Report 7799002-7 (Version None)
Quarter: 2011Q4

REPORT INFORMATION
  Report Type: 
  Country: None (occurrence: None)
  Receive Date: 20111006
  Receipt Date: 20111003
  Transmission Date: 20120403
  Serious: Yes (Death)
  Sender: FDA-Public Use
  Company Number: US-B.I. PHARMACEUTICALS,INC./RIDGEFIELD-2011-BP-23364BP

PATIENT
  Sex: Male

DRUGS (3)
  1. ATROVENT HFA [Suspect]
     Indication: DYSPNOEA
     Route: 055
  2. MEDICATION NOT FURTHER SPECIFIED [Concomitant]
     Indication: PAIN
  3. ADVAIR DISKUS 100/50 [Concomitant]
     Indication: DYSPNOEA

REACTIONS (1)
  - NON-SMALL CELL LUNG CANCER [None]
